FAERS Safety Report 13140515 (Version 2)
Quarter: 2017Q1

REPORT INFORMATION
  Report Type: Report from Study
  Country: EG (occurrence: EG)
  Receive Date: 20170123
  Receipt Date: 20170217
  Transmission Date: 20170428
  Serious: Yes (Death, Hospitalization)
  Sender: FDA-Public Use
  Company Number: EG-B.I. PHARMACEUTICALS,INC./RIDGEFIELD-2017-BI-002488

PATIENT
  Age: 70 Year
  Sex: Male

DRUGS (5)
  1. ARCALION [Concomitant]
     Active Substance: SULBUTIAMINE
     Indication: PRODUCT USED FOR UNKNOWN INDICATION
     Route: 065
  2. AMINOPHYLLINE. [Concomitant]
     Active Substance: AMINOPHYLLINE
     Indication: PRODUCT USED FOR UNKNOWN INDICATION
     Route: 065
  3. ACETYLCYSTEINE. [Concomitant]
     Active Substance: ACETYLCYSTEINE
     Indication: PRODUCT USED FOR UNKNOWN INDICATION
     Route: 065
  4. CAPOZIDE [Concomitant]
     Active Substance: CAPTOPRIL\HYDROCHLOROTHIAZIDE
     Indication: PRODUCT USED FOR UNKNOWN INDICATION
     Route: 065
  5. SPIRIVA [Suspect]
     Active Substance: TIOTROPIUM BROMIDE MONOHYDRATE
     Indication: CHRONIC OBSTRUCTIVE PULMONARY DISEASE
     Route: 050
     Dates: start: 20161213, end: 20161227

REACTIONS (2)
  - Death [Fatal]
  - Tracheostomy [Not Recovered/Not Resolved]

NARRATIVE: CASE EVENT DATE: 20161227
